FAERS Safety Report 9567735 (Version 1)
Quarter: 2013Q3

REPORT INFORMATION
  Report Type: Spontaneous
  Country: US (occurrence: US)
  Receive Date: 20130930
  Receipt Date: 20130930
  Transmission Date: 20140515
  Serious: No
  Sender: FDA-Public Use
  Company Number: US-AMGEN-USASP2013028848

PATIENT
  Age: 53 Year
  Sex: Male
  Weight: 99.77 kg

DRUGS (4)
  1. ENBREL [Suspect]
     Indication: PRODUCT USED FOR UNKNOWN INDICATION
     Dosage: 50 MG, 2 TIMES/WK
     Route: 058
  2. VYTORIN [Concomitant]
     Dosage: 10/20 MG
     Route: 048
  3. TOPROL [Concomitant]
     Dosage: 50 MG, UNK
     Route: 048
  4. ASA [Concomitant]
     Dosage: 81 MG, UNK
     Route: 048

REACTIONS (2)
  - Asthma [Unknown]
  - Bronchial disorder [Unknown]
